FAERS Safety Report 8880746 (Version 1)
Quarter: 2012Q4

REPORT INFORMATION
  Report Type: 
  Country: DK (occurrence: IT)
  Receive Date: 20121101
  Receipt Date: 20121101
  Transmission Date: 20130627
  Serious: Yes (Hospitalization)
  Sender: FDA-Public Use
  Company Number: IT-FRI-1000039957

PATIENT
  Age: 41 Year
  Sex: Female

DRUGS (4)
  1. ESCITALOPRAM [Suspect]
     Dosage: Intentional overdose: 40 tablets of 10 mg
     Route: 048
     Dates: start: 20120824, end: 20120824
  2. LARGACTIL [Suspect]
     Dosage: Intentional overdose: 19 tablets of 100 mg
     Route: 048
     Dates: start: 20120824, end: 20120824
  3. LENDORMIN [Suspect]
     Dosage: Intentional overdose: 19 tablets of 0.25 mg
     Route: 048
     Dates: start: 20120824, end: 20120824
  4. DEPAKIN CHRONO [Suspect]
     Dosage: intentional overdose: 54 tablets of 500 mg
     Route: 048
     Dates: start: 20120824, end: 20120824

REACTIONS (2)
  - Sopor [Recovered/Resolved]
  - Intentional overdose [Recovered/Resolved]
